FAERS Safety Report 9603781 (Version 3)
Quarter: 2014Q2

REPORT INFORMATION
  Report Type: Report from Study
  Country: CA (occurrence: CA)
  Receive Date: 20131008
  Receipt Date: 20140425
  Transmission Date: 20141212
  Serious: Yes (Life-Threatening, Hospitalization)
  Sender: FDA-Public Use
  Company Number: CA-ABBVIE-13P-028-1154005-00

PATIENT
  Age: 62 Year
  Sex: Female
  Weight: 55.84 kg

DRUGS (13)
  1. HUMIRA [Suspect]
     Indication: CROHN^S DISEASE
     Route: 058
     Dates: start: 20130827, end: 20130924
  2. LOW FOLIC ACID [Concomitant]
     Indication: PRODUCT USED FOR UNKNOWN INDICATION
     Dosage: 5MG
     Route: 048
  3. RAMIPRIL [Concomitant]
     Indication: PRODUCT USED FOR UNKNOWN INDICATION
     Dosage: 2.5MG
     Route: 048
  4. APO ESOMEPRAZOLE [Concomitant]
     Indication: PRODUCT USED FOR UNKNOWN INDICATION
     Dosage: 40MG
     Route: 048
  5. APO FUROSEMIDE [Concomitant]
     Indication: PRODUCT USED FOR UNKNOWN INDICATION
     Dosage: 80MG
     Route: 048
  6. APO LORAZEPAM [Concomitant]
     Indication: ANXIETY
     Route: 048
  7. BISOPROLOL [Concomitant]
     Indication: PRODUCT USED FOR UNKNOWN INDICATION
     Dosage: 10MG
     Route: 048
  8. ATORVASTATIN [Concomitant]
     Indication: BLOOD CHOLESTEROL INCREASED
     Dosage: 40MG
     Route: 048
  9. EURO-K 10 [Concomitant]
     Indication: BLOOD POTASSIUM DECREASED
     Dosage: 4500MG
     Route: 048
  10. QUETIAPINE [Concomitant]
     Indication: PRODUCT USED FOR UNKNOWN INDICATION
     Dosage: 50MG
     Route: 048
  11. ASAPHEN [Concomitant]
     Indication: PRODUCT USED FOR UNKNOWN INDICATION
     Dosage: 80MG
     Route: 048
  12. NITRO PATCH [Concomitant]
     Indication: CARDIAC DISORDER
     Dosage: 2MG
     Route: 062
  13. NITRO SUBLINGUAL SPRAY [Concomitant]
     Indication: CARDIAC DISORDER
     Route: 060

REACTIONS (7)
  - Anaemia [Not Recovered/Not Resolved]
  - Pneumonia [Not Recovered/Not Resolved]
  - Pneumonia [Recovered/Resolved]
  - Haemoglobin abnormal [Recovered/Resolved]
  - Coma [Recovered/Resolved]
  - Fatigue [Not Recovered/Not Resolved]
  - Crohn^s disease [Unknown]
